FAERS Safety Report 24641925 (Version 1)
Quarter: 2024Q4

REPORT INFORMATION
  Report Type: Report from Study
  Country: US (occurrence: US)
  Receive Date: 20241120
  Receipt Date: 20241120
  Transmission Date: 20250115
  Serious: Yes (Other)
  Sender: ALEXION PHARMACEUTICALS
  Company Number: US-AstraZeneca-CH-00747362A

PATIENT

DRUGS (4)
  1. OSIMERTINIB [Suspect]
     Active Substance: OSIMERTINIB
     Dosage: 80 MILLIGRAM, QD
  2. OSIMERTINIB [Suspect]
     Active Substance: OSIMERTINIB
     Dosage: 80 MILLIGRAM, QD
  3. OSIMERTINIB [Suspect]
     Active Substance: OSIMERTINIB
     Dosage: 80 MILLIGRAM, QD
  4. OSIMERTINIB [Suspect]
     Active Substance: OSIMERTINIB
     Dosage: 80 MILLIGRAM, QD

REACTIONS (11)
  - Chills [Unknown]
  - Rash [Unknown]
  - Nail atrophy [Unknown]
  - Diarrhoea [Unknown]
  - Pruritus [Unknown]
  - Paraesthesia [Unknown]
  - Back pain [Recovering/Resolving]
  - Pain [Unknown]
  - Nasal vestibulitis [Unknown]
  - Skin wrinkling [Unknown]
  - Neoplasm [Unknown]
